FAERS Safety Report 4620177-2 (Version None)
Quarter: 2005Q1

REPORT INFORMATION
  Report Type: 
  Country: None (occurrence: None)
  Receive Date: 20050323
  Receipt Date: 20050323
  Transmission Date: 20050727
  Serious: Yes (Other)
  Sender: FDA-Public Use
  Company Number: None

PATIENT
  Age: 56 Year
  Sex: Female

DRUGS (1)
  1. MARCAINE [Suspect]
     Indication: KNEE ARTHROPLASTY
     Dosage: 15MG   ONE TIME   INTRAVENOU
     Route: 042
     Dates: start: 20050318, end: 20050318

REACTIONS (2)
  - ANAESTHETIC COMPLICATION [None]
  - DRUG INEFFECTIVE [None]
